FAERS Safety Report 14376871 (Version 1)
Quarter: 2018Q1

REPORT INFORMATION
  Report Type: Spontaneous
  Country: US (occurrence: US)
  Receive Date: 20180111
  Receipt Date: 20180111
  Transmission Date: 20180509
  Serious: Yes (Other)
  Sender: FDA-Public Use
  Company Number: US-BAYER-2018-003741

PATIENT
  Sex: Female

DRUGS (1)
  1. ALKA-SELTZER PLUS COLD AND COUGH FORMULA [Suspect]
     Active Substance: ACETAMINOPHEN\CHLORPHENIRAMINE\DEXTROMETHORPHAN\PHENYLEPHRINE
     Dosage: UNK
     Route: 048
     Dates: start: 20180105

REACTIONS (3)
  - Product use complaint [None]
  - Foreign body in respiratory tract [Unknown]
  - Choking [Unknown]

NARRATIVE: CASE EVENT DATE: 20180105
